FAERS Safety Report 8981843 (Version 1)
Quarter: 2012Q4

REPORT INFORMATION
  Report Type: 
  Country: BR (occurrence: BR)
  Receive Date: 20121223
  Receipt Date: 20121223
  Transmission Date: 20130627
  Serious: Yes (Other)
  Sender: FDA-Public Use
  Company Number: PHHY2012BR117772

PATIENT
  Sex: Female

DRUGS (6)
  1. DIOVAN HCT [Suspect]
     Indication: HYPERTENSION
     Dosage: 1 DF(80/12.5 mg), daily
     Route: 048
  2. CITALOPRAM [Concomitant]
     Indication: DEPRESSION
     Dosage: 1 DF(20 mg), daily
     Route: 048
  3. LEXOTAN [Concomitant]
     Indication: SEDATIVE THERAPY
     Dosage: 1 DF(3 mg), daily
     Route: 048
  4. COMBIVENT [Concomitant]
     Indication: ASTHMA
     Dosage: UNK UKN, UNK
  5. SERETIDE [Concomitant]
     Indication: ASTHMA
     Dosage: UNK UKN, UNK
  6. ALVESCO [Concomitant]
     Indication: ASTHMA
     Dosage: UNK UKN, UNK

REACTIONS (2)
  - Macular degeneration [Not Recovered/Not Resolved]
  - Deafness [Not Recovered/Not Resolved]
